FAERS Safety Report 6412917-7 (Version None)
Quarter: 2009Q4

REPORT INFORMATION
  Report Type: 
  Country: None (occurrence: None)
  Receive Date: 20091023
  Receipt Date: 20091015
  Transmission Date: 20100525
  Serious: Yes (Other)
  Sender: FDA-Public Use
  Company Number: US-TYCO HEALTHCARE/MALLINCKRODT-T200701370

PATIENT

DRUGS (18)
  1. OPTIMARK [Suspect]
     Indication: NUCLEAR MAGNETIC RESONANCE IMAGING
     Dosage: UNK, SINGLE
     Dates: start: 20061112, end: 20061112
  2. OMNISCAN [Suspect]
     Indication: ANGIOGRAM
     Dosage: 20 ML, SINGLE
     Dates: start: 20040108, end: 20040108
  3. OMNISCAN [Suspect]
     Indication: NUCLEAR MAGNETIC RESONANCE IMAGING
     Dates: start: 20041210, end: 20041210
  4. OMNISCAN [Suspect]
     Indication: NUCLEAR MAGNETIC RESONANCE IMAGING BRAIN
     Dates: start: 20050217, end: 20050217
  5. OMNISCAN [Suspect]
     Dosage: 15 ML, SINGLE
     Dates: start: 20050505, end: 20050505
  6. OMNISCAN [Suspect]
     Dosage: 15 ML, SINGLE
     Route: 042
     Dates: start: 20060125, end: 20060125
  7. OMNISCAN [Suspect]
     Dosage: 15 ML, SINGLE
     Route: 042
     Dates: start: 20060127, end: 20060127
  8. OMNISCAN [Suspect]
     Dosage: 20 ML, SINGLE
     Route: 042
     Dates: start: 20060818, end: 20060818
  9. CONTRAST MEDIA [Suspect]
     Indication: COMPUTERISED TOMOGRAM
     Dates: start: 20050616, end: 20050616
  10. CONTRAST MEDIA [Suspect]
     Dates: start: 20060119, end: 20060119
  11. OMNIPAQUE 140 [Suspect]
     Indication: COMPUTERISED TOMOGRAM
     Dosage: 150 UNK, UNK
     Dates: start: 20041006, end: 20041006
  12. VISIPAQUE [Suspect]
     Indication: COMPUTERISED TOMOGRAM THORAX
     Dosage: 105 ML, SINGLE
     Dates: start: 20060508, end: 20060508
  13. PROGRAF [Concomitant]
     Indication: PROPHYLAXIS AGAINST TRANSPLANT REJECTION
     Dosage: 2 MG, BID
  14. CELLCEPT [Concomitant]
     Indication: PROPHYLAXIS AGAINST TRANSPLANT REJECTION
     Dosage: 250 MG, BID
  15. COUMADIN [Concomitant]
     Indication: COAGULOPATHY
     Dosage: 7.5 MG, QD
     Dates: start: 19990101
  16. NORCO [Concomitant]
     Indication: PAIN
     Dosage: UNK, PRN
  17. PREDNISONE [Concomitant]
     Dates: start: 20060101
  18. ANTIBIOTICS [Concomitant]
     Indication: DRUG USE FOR UNKNOWN INDICATION
     Dates: start: 20050601, end: 20060401

REACTIONS (7)
  - ACNE [None]
  - DYSPNOEA EXERTIONAL [None]
  - NEPHROGENIC SYSTEMIC FIBROSIS [None]
  - OFF LABEL USE [None]
  - PALPITATIONS [None]
  - PULMONARY HYPERTENSION [None]
  - STAPHYLOCOCCAL INFECTION [None]
